FAERS Safety Report 5330980-1 (Version None)
Quarter: 2007Q2

REPORT INFORMATION
  Report Type: 
  Country: None (occurrence: None)
  Receive Date: 20070518
  Receipt Date: 20070518
  Transmission Date: 20071010
  Serious: Yes (Hospitalization)
  Sender: FDA-Public Use
  Company Number: None

PATIENT
  Age: 67 Year
  Sex: Female
  Weight: 105 kg

DRUGS (15)
  1. DAPTOMYCIN 600MG CUBIST PHARMACEUTICALS [Suspect]
     Indication: BURSITIS INFECTIVE
     Dosage: 600MG DAILY IV DRIP
     Route: 041
     Dates: start: 20070125, end: 20070206
  2. SIMVASTATIN [Suspect]
     Indication: HYPERLIPIDAEMIA
     Dosage: 40MG DAILY PO
     Route: 048
  3. CIPROFLOXACIN [Concomitant]
  4. COMBIVENT [Concomitant]
  5. ATENOLOL [Concomitant]
  6. CLONIDINE [Concomitant]
  7. WARFARIN SODIUM [Concomitant]
  8. LISINOPRIL WITH HCT [Concomitant]
  9. LEVOTHYROXINE SODIUM [Concomitant]
  10. METFORMIN HCL [Concomitant]
  11. PRAMIPEXOLE DIHYDROCHLORIDE [Concomitant]
  12. NORCO [Concomitant]
  13. FENOFIBRATE [Concomitant]
  14. MELOXICAM [Concomitant]
  15. AMBIEN [Concomitant]

REACTIONS (7)
  - BLOOD CREATINE PHOSPHOKINASE INCREASED [None]
  - BURSITIS INFECTIVE [None]
  - FALL [None]
  - LEUKOPENIA [None]
  - RADIUS FRACTURE [None]
  - ULNA FRACTURE [None]
  - UPPER LIMB FRACTURE [None]
